FAERS Safety Report 5895971-0 (Version None)
Quarter: 2008Q3

REPORT INFORMATION
  Report Type: 
  Country: None (occurrence: None)
  Receive Date: 20080924
  Receipt Date: 20080919
  Transmission Date: 20090109
  Serious: Yes (Other)
  Sender: FDA-Public Use
  Company Number: BR-ASTRAZENECA-2008UW19786

PATIENT
  Age: 36 Year
  Sex: Female
  Weight: 54 kg

DRUGS (2)
  1. ZOLADEX [Suspect]
     Indication: ENDOMETRIOSIS
     Route: 058
     Dates: start: 20060101, end: 20060101
  2. ZOLADEX [Suspect]
     Route: 058
     Dates: start: 20080813

REACTIONS (7)
  - ANXIETY [None]
  - ENDOMETRIOSIS [None]
  - HOT FLUSH [None]
  - HYSTERECTOMY [None]
  - LIBIDO DECREASED [None]
  - MOOD ALTERED [None]
  - NERVOUSNESS [None]
